FAERS Safety Report 19120208 (Version 6)
Quarter: 2023Q4

REPORT INFORMATION
  Report Type: Report from Study
  Country: JP (occurrence: JP)
  Receive Date: 20210412
  Receipt Date: 20231019
  Transmission Date: 20240109
  Serious: Yes (Hospitalization)
  Sender: FDA-Public Use
  Company Number: JP-ABBVIE-21K-087-3853814-00

PATIENT
  Age: 71 Year
  Sex: Female
  Weight: 42.7 kg

DRUGS (1)
  1. RINVOQ [Suspect]
     Active Substance: UPADACITINIB
     Indication: Rheumatoid arthritis
     Route: 048
     Dates: start: 20200629, end: 20220826

REACTIONS (4)
  - Aortic aneurysm [Recovered/Resolved]
  - Lumbar spinal stenosis [Unknown]
  - Therapeutic product effect incomplete [Unknown]
  - Scoliosis [Unknown]

NARRATIVE: CASE EVENT DATE: 20210308
